FAERS Safety Report 6015278-0 (Version None)
Quarter: 2008Q4

REPORT INFORMATION
  Report Type: 
  Country: None (occurrence: None)
  Receive Date: 20081218
  Receipt Date: 20081205
  Transmission Date: 20090506
  Serious: Yes (Hospitalization)
  Sender: FDA-Public Use
  Company Number: 232674K08USA

PATIENT
  Age: 50 Year
  Sex: Female

DRUGS (1)
  1. REBIF [Suspect]
     Indication: MULTIPLE SCLEROSIS
     Dosage: 44 MCG 3 IN 1 DAYS, SUBCUTANEOUS
     Route: 058
     Dates: start: 20050523

REACTIONS (3)
  - HYPERSENSITIVITY [None]
  - INJECTION SITE NECROSIS [None]
  - SYNCOPE [None]
